FAERS Safety Report 6858635-2 (Version None)
Quarter: 2010Q3

REPORT INFORMATION
  Report Type: 
  Country: None (occurrence: None)
  Receive Date: 20100719
  Receipt Date: 20080213
  Transmission Date: 20110219
  Serious: No
  Sender: FDA-Public Use
  Company Number: US-PFIZER INC-2008015887

PATIENT
  Sex: Female
  Weight: 90.9 kg

DRUGS (9)
  1. CHANTIX [Suspect]
     Indication: SMOKING CESSATION THERAPY
     Dates: start: 20071201
  2. LOPID [Concomitant]
  3. VALSARTAN [Concomitant]
  4. ATIVAN [Concomitant]
  5. PERIOSTAT [Concomitant]
  6. GLUCOVANCE [Concomitant]
  7. PAXIL [Concomitant]
  8. LIPITOR [Concomitant]
  9. ACETYLSALICYLIC ACID [Concomitant]

REACTIONS (3)
  - MYALGIA [None]
  - PRURITUS [None]
  - RASH [None]
